FAERS Safety Report 7652308-4 (Version None)
Quarter: 2011Q3

REPORT INFORMATION
  Report Type: 
  Country: None (occurrence: None)
  Receive Date: 20110722
  Receipt Date: 20100803
  Transmission Date: 20111222
  Serious: Yes (Death)
  Sender: FDA-Public Use
  Company Number: UTC-004558

PATIENT
  Age: 54 Year
  Sex: Female

DRUGS (1)
  1. REMODULIN [Suspect]
     Dosage: 69.12 UG/KG (0.048 UG/KG, 1 IN MIN), SUBCUTANEOUS
     Route: 058

REACTIONS (1)
  - DEATH [None]
